FAERS Safety Report 10746345 (Version 1)
Quarter: 2015Q1

REPORT INFORMATION
  Report Type: Spontaneous
  Country: US (occurrence: US)
  Receive Date: 20150128
  Receipt Date: 20150128
  Transmission Date: 20150721
  Serious: Yes (Hospitalization, Other)
  Sender: FDA-Public Use
  Company Number: US-PFIZER INC-2015031016

PATIENT
  Age: 80 Year
  Sex: Female

DRUGS (5)
  1. ADVIL MIGRAINE [Suspect]
     Active Substance: IBUPROFEN
     Indication: MIGRAINE
     Dosage: UNK
  2. ADVIL MIGRAINE [Suspect]
     Active Substance: IBUPROFEN
     Indication: ARTHRALGIA
  3. ADVIL [Suspect]
     Active Substance: IBUPROFEN
     Indication: PAIN
  4. ADVIL [Suspect]
     Active Substance: IBUPROFEN
     Indication: BACK PAIN
     Dosage: UNK
  5. ADVIL [Suspect]
     Active Substance: IBUPROFEN
     Indication: MIGRAINE
     Dosage: UNK

REACTIONS (10)
  - Back injury [Unknown]
  - Arthropathy [Unknown]
  - Cerebrovascular accident [Unknown]
  - Back pain [Unknown]
  - Pain [Unknown]
  - Fall [Unknown]
  - Back disorder [Unknown]
  - Spinal fracture [Unknown]
  - Intentional product misuse [Unknown]
  - Haemorrhage [Unknown]
